FAERS Safety Report 6374441-X (Version None)
Quarter: 2009Q3

REPORT INFORMATION
  Report Type: 
  Country: None (occurrence: None)
  Receive Date: 20090924
  Receipt Date: 20090914
  Transmission Date: 20100115
  Serious: Yes (Other)
  Sender: FDA-Public Use
  Company Number: ES-PFIZER INC-2009248547

PATIENT
  Age: 58 Year

DRUGS (1)
  1. CHAMPIX [Suspect]
     Indication: TOBACCO ABUSE
     Dosage: 1 MG, 2X/DAY
     Route: 048
     Dates: start: 20090521, end: 20090619

REACTIONS (3)
  - CRYING [None]
  - DISTURBANCE IN ATTENTION [None]
  - OBSESSIVE THOUGHTS [None]
